FAERS Safety Report 8113469-6 (Version None)
Quarter: 2012Q1

REPORT INFORMATION
  Report Type: 
  Country: None (occurrence: None)
  Receive Date: 20120203
  Receipt Date: 20120201
  Transmission Date: 20120608
  Serious: Yes (Death, Hospitalization, Other)
  Sender: FDA-Public Use
  Company Number: NL-BRISTOL-MYERS SQUIBB COMPANY-16319857

PATIENT
  Age: 50 Year
  Sex: Male

DRUGS (12)
  1. BMS833923 [Suspect]
     Indication: GASTROOESOPHAGEAL CANCER
     Dosage: LAST ADMINISTERED ON 27DEC2011(200MG)
     Route: 048
     Dates: start: 20110920, end: 20111227
  2. FUROSEMIDE [Concomitant]
     Dates: start: 20111103, end: 20111227
  3. POLYETHYLENE GLYCOL [Concomitant]
     Dates: start: 20111005, end: 20111227
  4. CISPLATIN [Suspect]
     Indication: GASTROOESOPHAGEAL CANCER
     Dosage: DOSE OF 80 MG/M2 ON DAY 1 OF A 21 DAY CYCLE,LAST ADMINISTERED ON 30NOV2011(CYCLE 3)
     Route: 042
     Dates: start: 20111004, end: 20111130
  5. CODEINE SULFATE [Concomitant]
     Dates: start: 20110927, end: 20111227
  6. METOCLOPRAMIDE HYDROCHLORIDE [Concomitant]
     Dates: start: 20111005, end: 20111227
  7. MOVICOLON [Concomitant]
     Dates: start: 20110901, end: 20111227
  8. FRAGMIN [Concomitant]
     Dates: start: 20111114, end: 20111227
  9. ONDANSETRON [Concomitant]
     Dates: start: 20111005, end: 20111227
  10. SUCRALFATE [Concomitant]
     Dates: start: 20111005, end: 20111227
  11. CAPECITABINE [Suspect]
     Indication: GASTROOESOPHAGEAL CANCER
     Dosage: DOSE 1000 MG/M2 TWICE DAILY ON DAYS1-14 OF A 21 DAY CYCLE,LAST ADMINISTERED ON 13DEC2011(CYCLE3)
     Route: 048
     Dates: start: 20111004, end: 20111213
  12. OMEPRAZOLE [Concomitant]
     Dates: start: 20111122, end: 20111227

REACTIONS (3)
  - DEEP VEIN THROMBOSIS [None]
  - HEPATIC FAILURE [None]
  - RENAL FAILURE [None]
